FAERS Safety Report 9732893 (Version 2)
Quarter: 2013Q4

REPORT INFORMATION
  Report Type: Spontaneous
  Country: US (occurrence: US)
  Receive Date: 20131204
  Receipt Date: 20131204
  Transmission Date: 20140711
  Serious: No
  Sender: FDA-Public Use
  Company Number: US-GILEAD-2009-0021338

PATIENT
  Age: 54 Year
  Sex: Female

DRUGS (1)
  1. LETAIRIS [Suspect]
     Indication: PULMONARY ARTERIAL HYPERTENSION
     Route: 048
     Dates: start: 20090303, end: 20090401

REACTIONS (4)
  - Fluid retention [Recovered/Resolved]
  - Weight increased [Recovered/Resolved]
  - Dyspnoea [Recovering/Resolving]
  - Oedema [Unknown]
